FAERS Safety Report 7616289 (Version 6)
Quarter: 2013Q1

REPORT INFORMATION
  Report Type: Report from Study
  Country: FR (occurrence: FR)
  Receive Date: 20101004
  Receipt Date: 20130325
  Transmission Date: 20140127
  Serious: Yes (Hospitalization)
  Sender: FDA-Public Use
  Company Number: FR-BAYER-201039645GPV

PATIENT
  Age: 66 Year
  Sex: Female
  Weight: 74 kg

DRUGS (8)
  1. SORAFENIB (RAF KINASE INHIBITOR) [Suspect]
     Indication: THYROID CANCER
     Dosage: UNK
     Route: 048
     Dates: start: 20100618, end: 20100630
  2. SORAFENIB (RAF KINASE INHIBITOR) [Suspect]
     Indication: THYROID CANCER
     Dosage: UNK
     Route: 048
     Dates: start: 20100707
  3. SORAFENIB (RAF KINASE INHIBITOR) [Suspect]
     Indication: THYROID CANCER
     Dosage: 200 MG QD + 400 MG QD
     Route: 048
     Dates: start: 20100818, end: 20100913
  4. LEVOTHYROX [Concomitant]
     Indication: THYROIDECTOMY
     Dosage: 150 ?G (DAILY DOSE), QD, ORAL
     Route: 048
     Dates: start: 198912
  5. INEXIUM [Concomitant]
     Indication: DYSPEPSIA
     Dosage: 40 MG (DAILY DOSE), QD, ORAL
     Route: 048
     Dates: start: 20100720
  6. EXFORGE [Concomitant]
     Indication: HYPERTENSION
     Dosage: 10 MG, QD
     Route: 048
     Dates: start: 20100802
  7. IMODIUM [Concomitant]
  8. XANAX [Concomitant]

REACTIONS (2)
  - Cerebrovascular accident [Recovered/Resolved with Sequelae]
  - Hypertension [Recovered/Resolved]
